FAERS Safety Report 8027454-6 (Version None)
Quarter: 2012Q1

REPORT INFORMATION
  Report Type: 
  Country: None (occurrence: None)
  Receive Date: 20120106
  Receipt Date: 20120104
  Transmission Date: 20120608
  Serious: Yes (Hospitalization)
  Sender: FDA-Public Use
  Company Number: BE-SANOFI-AVENTIS-2012SA000572

PATIENT
  Sex: Male

DRUGS (3)
  1. CABAZITAXEL [Suspect]
     Route: 042
     Dates: start: 20111205, end: 20111205
  2. CABAZITAXEL [Suspect]
     Indication: PROSTATE CANCER
     Route: 042
     Dates: start: 20110726, end: 20110726
  3. PREDNISONE TAB [Suspect]
     Indication: PROSTATE CANCER
     Route: 048
     Dates: start: 20110726, end: 20111228

REACTIONS (2)
  - CONFUSIONAL STATE [None]
  - ASTHENIA [None]
